FAERS Safety Report 8186393-0 (Version None)
Quarter: 2012Q1

REPORT INFORMATION
  Report Type: 
  Country: None (occurrence: None)
  Receive Date: 20120306
  Receipt Date: 20120228
  Transmission Date: 20120608
  Serious: Yes (Hospitalization)
  Sender: FDA-Public Use
  Company Number: BR-US-EMD SERONO, INC.-7116318

PATIENT
  Sex: Male

DRUGS (2)
  1. INSULIN [Suspect]
     Indication: PRODUCT USED FOR UNKNOWN INDICATION
  2. SAIZEN [Suspect]
     Indication: PRODUCT USED FOR UNKNOWN INDICATION
     Dosage: 8 MG (24 UI)
     Dates: start: 20120214, end: 20120224

REACTIONS (1)
  - BACTERIAL INFECTION [None]
